FAERS Safety Report 8142184-8 (Version None)
Quarter: 2012Q1

REPORT INFORMATION
  Report Type: 
  Country: None (occurrence: None)
  Receive Date: 20120103
  Receipt Date: 20111016
  Transmission Date: 20120608
  Serious: No
  Sender: FDA-Public Use
  Company Number: AE-2011-002381

PATIENT
  Age: 60 Year
  Sex: Male
  Weight: 76.6579 kg

DRUGS (4)
  1. INCIVEK [Suspect]
     Dosage: 2250 MG (750 MG,1 IN 8 HR),ORAL
     Route: 048
     Dates: start: 20110826
  2. RIBAVIRIN [Concomitant]
  3. PEGINTERFERON (PEGINTERFERON ALFA-2A) [Concomitant]
  4. DOXEPIN HCL [Concomitant]

REACTIONS (6)
  - RASH [None]
  - DIARRHOEA [None]
  - HAEMOGLOBIN DECREASED [None]
  - ANORECTAL DISORDER [None]
  - FAECES DISCOLOURED [None]
  - PRURITUS [None]
